FAERS Safety Report 4541176-5 (Version None)
Quarter: 2004Q4

REPORT INFORMATION
  Report Type: 
  Country: None (occurrence: None)
  Receive Date: 20041227
  Receipt Date: 20041210
  Transmission Date: 20050328
  Serious: Yes (Life-Threatening)
  Sender: FDA-Public Use
  Company Number: 2004-DE-06166GD(0)

PATIENT
  Age: 78 Year
  Sex: Female

DRUGS (5)
  1. IPRATROPIUM BROMIDE [Suspect]
     Indication: ASTHMA
     Dosage: 0.25 MG 4 HOURLY
     Route: 055
  2. ALBUTEROL SULFATE [Suspect]
     Indication: ASTHMA
     Dosage: 2.5 MG 4 HOURLY
     Route: 055
  3. METHYLPREDNISOLONE [Suspect]
     Indication: ASTHMA
     Dosage: 125 MG 8 HOURLY
     Route: 042
  4. ANTIBIOTICS (ANTIBIOTICS) [Concomitant]
  5. OXYGEN (OXYGEN) [Concomitant]

REACTIONS (11)
  - ASTHMA [None]
  - BLOOD PRESSURE INCREASED [None]
  - BRONCHOSPASM [None]
  - CONDITION AGGRAVATED [None]
  - CYANOSIS [None]
  - FATIGUE [None]
  - HEART RATE INCREASED [None]
  - PRODUCTIVE COUGH [None]
  - PYREXIA [None]
  - RESPIRATORY DISTRESS [None]
  - RESPIRATORY FAILURE [None]
